FAERS Safety Report 6123966-0 (Version None)
Quarter: 2009Q1

REPORT INFORMATION
  Report Type: 
  Country: None (occurrence: None)
  Receive Date: 20090319
  Receipt Date: 20090311
  Transmission Date: 20090719
  Serious: Yes (Hospitalization)
  Sender: FDA-Public Use
  Company Number: US-BAYER-200839967NA

PATIENT
  Age: 28 Year
  Sex: Female
  Weight: 61 kg

DRUGS (4)
  1. MIRENA [Suspect]
     Indication: CONTRACEPTION
     Route: 015
     Dates: start: 20080401, end: 20081111
  2. ZOLOFT [Concomitant]
     Indication: ANXIETY
     Route: 048
  3. CLONOPIN [Concomitant]
     Dosage: TOTAL DAILY DOSE: 1.0 MG
     Route: 048
  4. PARAGARD T 380A [Concomitant]
     Indication: CONTRACEPTION
     Route: 015
     Dates: start: 20081114

REACTIONS (7)
  - ABDOMINAL PAIN LOWER [None]
  - ACNE [None]
  - BLINDNESS TRANSIENT [None]
  - MIGRAINE WITH AURA [None]
  - PHOTOPSIA [None]
  - VISUAL IMPAIRMENT [None]
  - VULVOVAGINAL MYCOTIC INFECTION [None]
